FAERS Safety Report 7079442-4 (Version None)
Quarter: 2010Q4

REPORT INFORMATION
  Report Type: 
  Country: None (occurrence: None)
  Receive Date: 20101102
  Receipt Date: 20101025
  Transmission Date: 20110411
  Serious: Yes (Hospitalization, Other)
  Sender: FDA-Public Use
  Company Number: FR-MEDIMMUNE-MEDI-0011622

PATIENT
  Sex: Female

DRUGS (1)
  1. SYNAGIS [Suspect]
     Route: 030
     Dates: start: 20100930, end: 20100930

REACTIONS (6)
  - DYSPNOEA [None]
  - ERYTHEMA [None]
  - FEBRILE CONVULSION [None]
  - HYPOXIA [None]
  - PROCEDURAL COMPLICATION [None]
  - STATUS EPILEPTICUS [None]
